FAERS Safety Report 4616104-4 (Version None)
Quarter: 2005Q1

REPORT INFORMATION
  Report Type: 
  Country: None (occurrence: None)
  Receive Date: 20050323
  Receipt Date: 20050308
  Transmission Date: 20050727
  Serious: Yes (Other)
  Sender: FDA-Public Use
  Company Number: 200511824US

PATIENT
  Sex: Male

DRUGS (3)
  1. DERMATOP [Suspect]
     Indication: ECZEMA
     Dosage: DOSE: CREAM
     Dates: start: 20050201, end: 20050308
  2. TAMBOCOR [Concomitant]
     Dosage: DOSE: UNK
  3. ASPIRIN [Concomitant]
     Dosage: DOSE: UNK

REACTIONS (1)
  - ATRIAL FIBRILLATION [None]
